FAERS Safety Report 6302508-0 (Version None)
Quarter: 2009Q3

REPORT INFORMATION
  Report Type: 
  Country: None (occurrence: None)
  Receive Date: 20090810
  Receipt Date: 20090728
  Transmission Date: 20100115
  Serious: Yes (Other)
  Sender: FDA-Public Use
  Company Number: JP-ASTRAZENECA-2009SE07011

PATIENT
  Age: 84 Year
  Sex: Male

DRUGS (2)
  1. MEROPEN [Suspect]
     Indication: PNEUMONIA ASPIRATION
     Route: 042
  2. TAKEPRON [Concomitant]

REACTIONS (1)
  - PLATELET COUNT DECREASED [None]
